FAERS Safety Report 24353495 (Version 1)
Quarter: 2024Q3

REPORT INFORMATION
  Report Type: Spontaneous
  Country: US (occurrence: US)
  Receive Date: 20240923
  Receipt Date: 20240923
  Transmission Date: 20241017
  Serious: No
  Sender: PAREXEL
  Company Number: US-Stemline Therapeutics, Inc.-2024ST004613

PATIENT
  Age: 64 Year
  Sex: Female

DRUGS (2)
  1. ORSERDU [Suspect]
     Active Substance: ELACESTRANT
     Indication: Product used for unknown indication
     Dates: start: 20240612
  2. ORSERDU [Suspect]
     Active Substance: ELACESTRANT
     Dosage: 86 MG, 3 TABLETS, ONCE DAILY

REACTIONS (1)
  - Arthralgia [Recovered/Resolved]
